FAERS Safety Report 4704586-9 (Version None)
Quarter: 2005Q2

REPORT INFORMATION
  Report Type: 
  Country: None (occurrence: None)
  Receive Date: 20050629
  Receipt Date: 20050621
  Transmission Date: 20051028
  Serious: Yes (Hospitalization)
  Sender: FDA-Public Use
  Company Number: 2005087869

PATIENT
  Age: 56 Year
  Sex: Male
  Weight: 60 kg

DRUGS (8)
  1. SOLU-MEDROL [Suspect]
     Indication: MULTIPLE SCLEROSIS
     Dosage: 1 GRAM (1 IN 1 D), INTRAVENOUS
     Route: 042
     Dates: start: 20050603, end: 20050605
  2. MEDROL                     (METHYLPHEDNISOLONE) [Concomitant]
  3. SELBEX                       (TEPRENONE) [Concomitant]
  4. METHYCOBAL (MEDOBALAMIN) [Concomitant]
  5. FAMOTIDINE [Concomitant]
  6. ADALAT [Concomitant]
  7. ACTIT (MAGNESIUM CHLORIDE ANHYDROUS, MALTOSE, POTASSIUM CHLORIDE, POTA [Concomitant]
  8. VITACIMIN (ASCORBIC ACID) [Concomitant]

REACTIONS (5)
  - CEREBRAL HAEMORRHAGE [None]
  - CEREBRAL VENOUS THROMBOSIS [None]
  - HEADACHE [None]
  - HYPERTENSION [None]
  - NUCLEAR MAGNETIC RESONANCE IMAGING BRAIN ABNORMAL [None]
